FAERS Safety Report 19043827 (Version 1)
Quarter: 2021Q1

REPORT INFORMATION
  Report Type: Spontaneous
  Country: US (occurrence: US)
  Receive Date: 20210323
  Receipt Date: 20210323
  Transmission Date: 20210420
  Serious: No
  Sender: FDA-Public Use
  Company Number: None

PATIENT
  Age: 42 Year
  Sex: Male
  Weight: 75.8 kg

DRUGS (3)
  1. RECOMBINANT ANTIHEMOPHILIC FACTOR VIII [Concomitant]
     Dates: start: 20210217, end: 20210218
  2. HEMLIBRA [Suspect]
     Active Substance: EMICIZUMAB-KXWH
     Indication: FACTOR VIII DEFICIENCY
     Dosage: ?          OTHER FREQUENCY:WEEKLY;?
     Route: 058
     Dates: start: 20210226, end: 20210312
  3. METHADONE [Concomitant]
     Active Substance: METHADONE HYDROCHLORIDE
     Dates: start: 20101214

REACTIONS (3)
  - Product storage error [None]
  - Product administration error [None]
  - Wrong technique in product usage process [None]

NARRATIVE: CASE EVENT DATE: 20210319
